FAERS Safety Report 8470706-6 (Version None)
Quarter: 2012Q2

REPORT INFORMATION
  Report Type: 
  Country: None (occurrence: None)
  Receive Date: 20120627
  Receipt Date: 20120625
  Transmission Date: 20120825
  Serious: Yes (Other)
  Sender: FDA-Public Use
  Company Number: US-PFIZER INC-2012153324

PATIENT
  Sex: Female
  Weight: 56.689 kg

DRUGS (10)
  1. TAMOXIFEN CITRATE [Suspect]
     Indication: BREAST CANCER FEMALE
     Dosage: UNK
  2. DEPAKOTE [Suspect]
     Dosage: 700 MG, DAILY
     Dates: start: 20110101
  3. EVISTA [Suspect]
     Indication: BREAST CANCER FEMALE
     Dosage: UNK
  4. ZOLOFT [Suspect]
     Indication: MENTAL DISORDER
     Dosage: 100 MG,DAILY
     Dates: start: 20010101
  5. GEODON [Suspect]
     Indication: BIPOLAR DISORDER
     Dosage: 40 MG, 2X/DAY
  6. LITHIUM CARBONATE [Suspect]
     Dosage: UNK
     Dates: end: 20110515
  7. GEODON [Suspect]
     Dosage: UNK
  8. AMBIEN [Concomitant]
     Dosage: 10 MG, DAILY
  9. LAMICTAL [Suspect]
     Dosage: 75 MG, DAILY
     Dates: start: 20110101
  10. GEODON [Suspect]
     Indication: BIPOLAR I DISORDER
     Dosage: 60 MG, UNK
     Dates: start: 20010101

REACTIONS (4)
  - NAUSEA [None]
  - HYPERTENSION [None]
  - HYPOAESTHESIA [None]
  - BREAST CANCER FEMALE [None]
